FAERS Safety Report 8186404-2 (Version None)
Quarter: 2012Q1

REPORT INFORMATION
  Report Type: 
  Country: None (occurrence: None)
  Receive Date: 20120306
  Receipt Date: 20120227
  Transmission Date: 20120608
  Serious: Yes (Hospitalization)
  Sender: FDA-Public Use
  Company Number: FR-TEVA-325631ISR

PATIENT
  Sex: Female
  Weight: 47 kg

DRUGS (1)
  1. FLURBIPROFEN [Suspect]
     Indication: DYSMENORRHOEA
     Route: 048
     Dates: start: 20120101, end: 20120114

REACTIONS (1)
  - RENAL FAILURE ACUTE [None]
